FAERS Safety Report 7183764-6 (Version None)
Quarter: 2010Q4

REPORT INFORMATION
  Report Type: 
  Country: None (occurrence: None)
  Receive Date: 20101220
  Receipt Date: 20101220
  Transmission Date: 20110411
  Serious: Yes (Hospitalization)
  Sender: FDA-Public Use
  Company Number: None

PATIENT
  Age: 89 Year
  Sex: Male
  Weight: 105 kg

DRUGS (15)
  1. COUMADIN [Suspect]
     Indication: ATRIAL FIBRILLATION
     Dosage: 5MG MWF , 2.5 MG T TH SS  PO  CHRONIC
     Route: 048
  2. AVODART [Concomitant]
  3. GLIPIZIDE [Concomitant]
  4. ACTOS [Concomitant]
  5. LASIX [Concomitant]
  6. CALCIUM [Concomitant]
  7. MULTIVITAMIN [Concomitant]
  8. TOPROL-XL [Concomitant]
  9. NOVOLOG [Concomitant]
  10. PREDNISONE [Concomitant]
  11. POTASSIUM CHLORIDE [Concomitant]
  12. GLYSET [Concomitant]
  13. LUPRON [Concomitant]
  14. ZOCOR [Concomitant]
  15. DIFLUCAN [Concomitant]

REACTIONS (5)
  - ANAEMIA [None]
  - DIARRHOEA [None]
  - GASTRITIS HAEMORRHAGIC [None]
  - GASTROINTESTINAL HAEMORRHAGE [None]
  - INTERNATIONAL NORMALISED RATIO INCREASED [None]
